FAERS Safety Report 5784777-9 (Version None)
Quarter: 2008Q2

REPORT INFORMATION
  Report Type: 
  Country: None (occurrence: None)
  Receive Date: 20080605
  Receipt Date: 20080414
  Transmission Date: 20081010
  Serious: No
  Sender: FDA-Public Use
  Company Number: A0722570A

PATIENT

DRUGS (1)
  1. ALLI [Suspect]
     Route: 048

REACTIONS (5)
  - FLATULENCE [None]
  - NONSPECIFIC REACTION [None]
  - SENSATION OF FOREIGN BODY [None]
  - STRESS [None]
  - ULCER [None]
